FAERS Safety Report 9030301 (Version 2)
Quarter: 2013Q1

REPORT INFORMATION
  Report Type: Spontaneous
  Country: US (occurrence: US)
  Receive Date: 20130122
  Receipt Date: 20130208
  Transmission Date: 20140127
  Serious: Yes (Disabling)
  Sender: FDA-Public Use
  Company Number: US-PFIZER INC-2013022751

PATIENT
  Age: 34 Year
  Sex: Male
  Weight: 68.03 kg

DRUGS (9)
  1. VIAGRA [Suspect]
     Indication: ERECTILE DYSFUNCTION
     Dosage: 100 MG, AS NEEDED
     Route: 048
     Dates: start: 1998
  2. OMEPRAZOLE [Concomitant]
     Dosage: 20 MG, 1X/DAY
  3. DIPHENOXYLATE W/ATROPINE SULFATE [Concomitant]
     Dosage: 2.5 MG, UNK
  4. OXYBUTYNIN [Concomitant]
     Dosage: 15 MG, UNK
  5. DOXYCYCLINE [Concomitant]
     Dosage: 20 MG, UNK
  6. DIVALPROEX [Concomitant]
     Dosage: 1000 MG, 3X/DAY
  7. IBUPROFEN [Concomitant]
     Dosage: 800 MG, 4X/DAY
  8. BACLOFEN [Concomitant]
     Dosage: 10 MG, 10X/DAY
  9. TRAZODONE [Concomitant]
     Dosage: 300 MG, 1X/DAY

REACTIONS (1)
  - Multiple sclerosis [Not Recovered/Not Resolved]
